FAERS Safety Report 5076164-6 (Version None)
Quarter: 2006Q3

REPORT INFORMATION
  Report Type: 
  Country: None (occurrence: None)
  Receive Date: 20060725
  Receipt Date: 20060511
  Transmission Date: 20061208
  Serious: No
  Sender: FDA-Public Use
  Company Number: 200610809BWH

PATIENT
  Age: 68 Year
  Sex: Male

DRUGS (5)
  1. NEXAVAR [Suspect]
     Indication: RENAL CELL CARCINOMA STAGE UNSPECIFIED
     Dosage: 400 MG, BID, ORAL
     Route: 048
     Dates: start: 20060127
  2. COUMADIN [Concomitant]
  3. SPIRONOLACTONE [Concomitant]
  4. HYDROCHLOROTHIAZIDE [Concomitant]
  5. VITAMINS [Concomitant]

REACTIONS (13)
  - ABDOMINAL PAIN [None]
  - ANOREXIA [None]
  - ASTHENIA [None]
  - BLOOD PRESSURE INCREASED [None]
  - DIARRHOEA [None]
  - DRY SKIN [None]
  - DYSPNOEA EXERTIONAL [None]
  - FATIGUE [None]
  - FLANK PAIN [None]
  - LUNG DISORDER [None]
  - NAUSEA [None]
  - URINARY RETENTION [None]
  - VOMITING [None]
